FAERS Safety Report 9563644 (Version 1)
Quarter: 2013Q3

REPORT INFORMATION
  Report Type: Spontaneous
  Country: US (occurrence: None)
  Receive Date: 20130926
  Receipt Date: 20130926
  Transmission Date: 20140515
  Serious: Yes (Hospitalization)
  Sender: FDA-Public Use
  Company Number: SYM-2013-10885

PATIENT
  Sex: Female

DRUGS (2)
  1. BUPROPION SR [Suspect]
     Indication: SUBSTANCE ABUSE
  2. METHAMPHETAMINE (METAMFETAMINE HYDROCHLORIDE) [Concomitant]

REACTIONS (2)
  - Suicidal ideation [None]
  - Dependence [None]
